FAERS Safety Report 15635214 (Version 1)
Quarter: 2018Q4

REPORT INFORMATION
  Report Type: Spontaneous
  Country: DE (occurrence: DE)
  Receive Date: 20181120
  Receipt Date: 20181120
  Transmission Date: 20190205
  Serious: Yes (Congenital Anomaly)
  Sender: FDA-Public Use
  Company Number: DE-TEVA-2018-DE-976316

PATIENT
  Age: 0 Year

DRUGS (2)
  1. QUETIAPINE. [Suspect]
     Active Substance: QUETIAPINE
     Indication: DEPRESSION
     Dosage: 150 MILLIGRAM DAILY; 150 [MG/D ]
     Route: 064
     Dates: start: 20180123, end: 20180427
  2. DULOXETIN [Suspect]
     Active Substance: DULOXETINE
     Indication: DEPRESSION
     Dosage: 60 MILLIGRAM DAILY; 60 [MG/D ]
     Route: 064
     Dates: start: 20180123, end: 20180427

REACTIONS (3)
  - Abdominal wall anomaly [Not Recovered/Not Resolved]
  - Ectopia cordis [Not Recovered/Not Resolved]
  - Foetal exposure during pregnancy [Unknown]
